FAERS Safety Report 7244930-4 (Version None)
Quarter: 2011Q1

REPORT INFORMATION
  Report Type: 
  Country: None (occurrence: None)
  Receive Date: 20110126
  Receipt Date: 20110111
  Transmission Date: 20110831
  Serious: Yes (Hospitalization, Other)
  Sender: FDA-Public Use
  Company Number: DE-ELI_LILLY_AND_COMPANY-DE201101002340

PATIENT
  Sex: Female

DRUGS (2)
  1. CALCIUM + VITAMIN D [Concomitant]
     Dosage: UNK, UNKNOWN
     Route: 065
  2. FORTEO [Suspect]
     Indication: OSTEOPOROSIS
     Dosage: UNK, UNKNOWN
     Route: 058
     Dates: start: 20091106, end: 20101221

REACTIONS (1)
  - VAGINAL CANCER [None]
